FAERS Safety Report 9608981 (Version 2)
Quarter: 2013Q4

REPORT INFORMATION
  Report Type: Spontaneous
  Country: CA (occurrence: CA)
  Receive Date: 20131009
  Receipt Date: 20131104
  Transmission Date: 20140711
  Serious: Yes (Hospitalization, Other)
  Sender: FDA-Public Use
  Company Number: CA-PFIZER INC-2013281242

PATIENT
  Age: 62 Year
  Sex: Male

DRUGS (3)
  1. CELEBREX [Suspect]
  2. ENBREL [Suspect]
     Indication: RHEUMATOID ARTHRITIS
     Dosage: 50 MG, WEEKLY
     Route: 058
     Dates: start: 20110526, end: 20121030
  3. PREDNISONE [Suspect]

REACTIONS (4)
  - Prostate cancer [Recovered/Resolved]
  - Cardiac disorder [Unknown]
  - Renal disorder [Unknown]
  - Arthritis [Not Recovered/Not Resolved]
